FAERS Safety Report 7709992-6 (Version None)
Quarter: 2011Q3

REPORT INFORMATION
  Report Type: 
  Country: None (occurrence: None)
  Receive Date: 20110825
  Receipt Date: 20110812
  Transmission Date: 20111222
  Serious: Yes (Other)
  Sender: FDA-Public Use
  Company Number: PHHY2011PK75018

PATIENT
  Sex: Female
  Weight: 1.8 kg

DRUGS (8)
  1. CLOPIDOGREL [Suspect]
     Dosage: 75 MG, QD
  2. ATENOLOL [Suspect]
     Dosage: 25 MG, BID
  3. ASPIRIN [Suspect]
     Dosage: 75 MG, QD
  4. METOPROLOL TARTRATE [Suspect]
     Dosage: 25 MG, TID
  5. WARFARIN SODIUM [Suspect]
     Dosage: 2.5 MG, QD
  6. PROGESTERONE [Suspect]
  7. LASORIDE [Suspect]
     Dosage: 40 MG, QD
  8. WARFARIN SODIUM [Suspect]
     Dosage: 7.5 MG, UNK

REACTIONS (3)
  - MATERNAL EXPOSURE DURING PREGNANCY [None]
  - SMALL FOR DATES BABY [None]
  - PREMATURE BABY [None]
